FAERS Safety Report 7329825-X (Version None)
Quarter: 2011Q1

REPORT INFORMATION
  Report Type: 
  Country: None (occurrence: None)
  Receive Date: 20110303
  Receipt Date: 20110221
  Transmission Date: 20110831
  Serious: Yes (Hospitalization, Other)
  Sender: FDA-Public Use
  Company Number: US-ELI_LILLY_AND_COMPANY-US201102007112

PATIENT
  Age: 74 Year
  Sex: Male

DRUGS (5)
  1. DEXAMETHASONE [Concomitant]
     Dosage: 4 MG, 2/D
     Route: 048
  2. GEMCITABINE HYDROCHLORIDE [Suspect]
     Indication: HEAD AND NECK CANCER
     Dosage: 1250 MG/M2, UNK
     Route: 042
  3. ALIMTA [Suspect]
     Indication: HEAD AND NECK CANCER
     Dosage: 500 MG/M2, UNK
     Route: 042
  4. VITAMIN B-12 [Concomitant]
     Dosage: 1000 UG, UNK
  5. FOLIC ACID [Concomitant]
     Dosage: UNK, DAILY (1/D)

REACTIONS (5)
  - NEUTROPENIA [None]
  - MUCOSAL INFLAMMATION [None]
  - PNEUMONIA [None]
  - DISEASE PROGRESSION [None]
  - THROMBOCYTOPENIA [None]
